FAERS Safety Report 16297801 (Version 3)
Quarter: 2019Q2

REPORT INFORMATION
  Report Type: Spontaneous
  Country: JP (occurrence: JP)
  Receive Date: 20190510
  Receipt Date: 20190527
  Transmission Date: 20190711
  Serious: Yes (Hospitalization, Other)
  Sender: FDA-Public Use
  Company Number: JP-ASTELLAS-2019JP008002

PATIENT
  Age: 77 Year
  Sex: Female

DRUGS (1)
  1. BETANIS [Suspect]
     Active Substance: MIRABEGRON
     Indication: HYPERTONIC BLADDER
     Route: 048
     Dates: start: 20190104

REACTIONS (2)
  - Neutrophil count decreased [Unknown]
  - Bile duct stone [Recovered/Resolved]

NARRATIVE: CASE EVENT DATE: 20190227
